FAERS Safety Report 9448726 (Version 2)
Quarter: 2013Q3

REPORT INFORMATION
  Report Type: Spontaneous
  Country: BR (occurrence: BR)
  Receive Date: 20130808
  Receipt Date: 20130930
  Transmission Date: 20140515
  Serious: Yes (Hospitalization, Other)
  Sender: FDA-Public Use
  Company Number: BR-009507513-1308BRA002072

PATIENT
  Age: 30 Year
  Sex: Female
  Weight: 52 kg

DRUGS (2)
  1. NUVARING [Suspect]
     Indication: CONTRACEPTION
     Dosage: UNK
     Route: 067
     Dates: start: 201301
  2. NUVARING [Suspect]
     Dosage: UNK
     Route: 067
     Dates: start: 20130915

REACTIONS (2)
  - Stevens-Johnson syndrome [Recovered/Resolved]
  - Helicobacter gastritis [Recovered/Resolved]
